FAERS Safety Report 7856619 (Version 3)
Quarter: 2012Q4

REPORT INFORMATION
  Report Type: 
  Country: NL (occurrence: NL)
  Receive Date: 20110315
  Receipt Date: 20120911
  Transmission Date: 20130627
  Serious: Yes (Hospitalization)
  Sender: FDA-Public Use
  Company Number: NL-B.I. PHARMACEUTICALS,INC./RIDGEFIELD-2011-NL-00098NL

PATIENT
  Sex: Female

DRUGS (4)
  1. SIFROL RETARD [Suspect]
     Indication: PARKINSON^S DISEASE
     Route: 048
     Dates: start: 201003
  2. SINEMET [Concomitant]
  3. COMTAN [Concomitant]
     Dates: end: 201011
  4. MADOPAR [Concomitant]
     Dates: end: 201011

REACTIONS (6)
  - Parkinsonism [Not Recovered/Not Resolved]
  - Drug ineffective [Unknown]
  - Medication residue [Not Recovered/Not Resolved]
  - Limb discomfort [Unknown]
  - Pain in extremity [Unknown]
  - Abnormal faeces [Unknown]
